FAERS Safety Report 5118327-7 (Version None)
Quarter: 2006Q4

REPORT INFORMATION
  Report Type: 
  Country: None (occurrence: None)
  Receive Date: 20061002
  Receipt Date: 20060925
  Transmission Date: 20070319
  Serious: Yes (Hospitalization)
  Sender: FDA-Public Use
  Company Number: FR-AVENTIS-200613323FR

PATIENT
  Age: 46 Year
  Sex: Male

DRUGS (3)
  1. LOVENOX                            /00889602/ [Suspect]
     Route: 058
     Dates: start: 20060721, end: 20060729
  2. ASPIRIN [Suspect]
     Route: 048
     Dates: start: 20060710, end: 20060729
  3. PROZAC [Concomitant]
     Indication: DEPRESSION
     Route: 048
     Dates: end: 20060729

REACTIONS (2)
  - DUODENAL ULCER [None]
  - MELAENA [None]
